FAERS Safety Report 5484711-5 (Version None)
Quarter: 2007Q4

REPORT INFORMATION
  Report Type: 
  Country: None (occurrence: None)
  Receive Date: 20071012
  Receipt Date: 20071003
  Transmission Date: 20080405
  Serious: Yes (Disabling, Other)
  Sender: FDA-Public Use
  Company Number: FR-PFIZER INC-2007083416

PATIENT
  Sex: Male

DRUGS (2)
  1. TAHOR [Suspect]
     Indication: CEREBROVASCULAR ACCIDENT
  2. PREVISCAN [Concomitant]

REACTIONS (1)
  - PAIN IN EXTREMITY [None]
